FAERS Safety Report 10282099 (Version 2)
Quarter: 2014Q3

REPORT INFORMATION
  Report Type: Report from Study
  Country: UG (occurrence: UG)
  Receive Date: 20140707
  Receipt Date: 20140716
  Transmission Date: 20150326
  Serious: Yes (Death)
  Sender: FDA-Public Use
  Company Number: UG-VIIV HEALTHCARE LIMITED-B1011074A

PATIENT
  Age: 41 Year
  Sex: Male

DRUGS (11)
  1. COARTEM [Concomitant]
     Active Substance: ARTEMETHER\LUMEFANTRINE
     Dates: start: 20140612, end: 20140616
  2. CIPROFLOXACIN. [Concomitant]
     Active Substance: CIPROFLOXACIN
     Dates: start: 20140617, end: 20140621
  3. EFAVIRENZ [Suspect]
     Active Substance: EFAVIRENZ
     Indication: HIV INFECTION
     Dates: start: 20140422
  4. METRONIDAZOLE. [Concomitant]
     Active Substance: METRONIDAZOLE
     Dates: start: 20140617, end: 20140621
  5. LAMIVUDINE-HIV [Suspect]
     Active Substance: LAMIVUDINE
     Indication: HIV INFECTION
     Dates: start: 20140422
  6. DAPSONE. [Concomitant]
     Active Substance: DAPSONE
     Dates: start: 20140203
  7. RALTEGRAVIR [Suspect]
     Active Substance: RALTEGRAVIR
     Indication: HIV INFECTION
     Dates: start: 20140422
  8. ALBENDAZOLE [Concomitant]
     Active Substance: ALBENDAZOLE
     Dates: start: 20140617, end: 20140617
  9. PARACETAMOL [Concomitant]
     Active Substance: ACETAMINOPHEN
     Dates: start: 20140612, end: 20140616
  10. ZIDOVUDINE. [Suspect]
     Active Substance: ZIDOVUDINE
     Indication: HIV INFECTION
     Dates: start: 20140422
  11. FEFO [Concomitant]
     Dates: start: 20140612

REACTIONS (7)
  - Thrombocytopenia [Fatal]
  - Renal failure acute [Fatal]
  - Leukopenia [Fatal]
  - Pneumonia [Fatal]
  - Dehydration [Fatal]
  - Anaemia [Fatal]
  - Death [Fatal]

NARRATIVE: CASE EVENT DATE: 20140622
